FAERS Safety Report 4482402-0 (Version None)
Quarter: 2004Q4

REPORT INFORMATION
  Report Type: 
  Country: None (occurrence: None)
  Receive Date: 20041022
  Receipt Date: 20040506
  Transmission Date: 20050328
  Serious: No
  Sender: FDA-Public Use
  Company Number: US-BRISTOL-MYERS SQUIBB COMPANY-12581542

PATIENT
  Age: 41 Year
  Sex: Female
  Weight: 84 kg

DRUGS (6)
  1. BUSPAR [Suspect]
     Indication: ANXIETY
     Route: 048
     Dates: start: 20040414
  2. KLOR-CON [Concomitant]
  3. RISPERDAL [Concomitant]
  4. TRAZODONE HCL [Concomitant]
  5. EFFEXOR [Concomitant]
  6. MULTI-VITAMIN [Concomitant]

REACTIONS (1)
  - ALOPECIA [None]
